FAERS Safety Report 18009039 (Version 1)
Quarter: 2020Q3

REPORT INFORMATION
  Report Type: Spontaneous
  Country: US (occurrence: US)
  Receive Date: 20200710
  Receipt Date: 20200710
  Transmission Date: 20201103
  Serious: Yes (Other)
  Sender: FDA-Public Use
  Company Number: US-SAOL THERAPEUTICS-2019SAO00493

PATIENT
  Age: 73 Year
  Sex: Female

DRUGS (3)
  1. LIORESAL [Suspect]
     Active Substance: BACLOFEN
     Dosage: 711.5 ?G, \DAY
     Route: 037
     Dates: end: 2019
  2. LIORESAL [Suspect]
     Active Substance: BACLOFEN
     Dosage: 335 ?G, \DAY
     Route: 037
     Dates: start: 2019
  3. ORAL BACLOFEN [Concomitant]
     Active Substance: BACLOFEN
     Route: 048

REACTIONS (2)
  - Therapy non-responder [Not Recovered/Not Resolved]
  - Complication associated with device [Recovered/Resolved]

NARRATIVE: CASE EVENT DATE: 201911
